FAERS Safety Report 8130532-4 (Version None)
Quarter: 2012Q1

REPORT INFORMATION
  Report Type: 
  Country: None (occurrence: None)
  Receive Date: 20120210
  Receipt Date: 20120201
  Transmission Date: 20120608
  Serious: Yes (Other)
  Sender: FDA-Public Use
  Company Number: US-ASTRAZENECA-2010SE36905

PATIENT
  Age: 51 Year
  Sex: Female

DRUGS (11)
  1. SEROQUEL XR [Suspect]
     Route: 048
     Dates: start: 20090101
  2. ZOLOFT [Concomitant]
  3. SEROQUEL XR [Suspect]
     Route: 048
  4. SEROQUEL XR [Suspect]
     Indication: BIPOLAR I DISORDER
     Route: 048
     Dates: start: 20060101
  5. SEROQUEL XR [Suspect]
     Route: 048
  6. SEROQUEL XR [Suspect]
     Indication: POST-TRAUMATIC STRESS DISORDER
     Route: 048
     Dates: start: 20060101
  7. LEVOTHYROXINE SODIUM [Concomitant]
  8. SEROQUEL XR [Suspect]
     Route: 048
     Dates: start: 20090101
  9. KLONOPIN [Concomitant]
  10. WELLBUTRIN XL [Concomitant]
  11. LITHIUM CARBONATE [Concomitant]

REACTIONS (8)
  - CHRONIC LYMPHOCYTIC LEUKAEMIA [None]
  - BLOOD CHOLESTEROL INCREASED [None]
  - OFF LABEL USE [None]
  - INTERVERTEBRAL DISC DEGENERATION [None]
  - HYPERTENSION [None]
  - WEIGHT INCREASED [None]
  - B-CELL SMALL LYMPHOCYTIC LYMPHOMA [None]
  - TYPE 2 DIABETES MELLITUS [None]
